FAERS Safety Report 23325531 (Version 1)
Quarter: 2023Q4

REPORT INFORMATION
  Report Type: Spontaneous
  Country: DE (occurrence: DE)
  Receive Date: 20231221
  Receipt Date: 20231221
  Transmission Date: 20240109
  Serious: Yes (Disabling)
  Sender: FDA-Public Use
  Company Number: None

PATIENT
  Age: 22 Year
  Sex: Female
  Weight: 60 kg

DRUGS (1)
  1. ETHINYL ESTRADIOL\LEVONORGESTREL [Suspect]
     Active Substance: ETHINYL ESTRADIOL\LEVONORGESTREL
     Indication: Contraception
     Dosage: 0.15 MG / 0.03 MG
     Route: 048
     Dates: start: 2012, end: 20210630

REACTIONS (10)
  - Dizziness [Recovered/Resolved]
  - Tinnitus [Recovered/Resolved]
  - Pain [Unknown]
  - Visual field defect [Recovered/Resolved]
  - Fatigue [Unknown]
  - Hypoaesthesia [Recovered/Resolved with Sequelae]
  - Hypoaesthesia [Unknown]
  - Sick leave [Unknown]
  - Asthenia [Unknown]
  - Migraine with aura [Recovered/Resolved]

NARRATIVE: CASE EVENT DATE: 20150101
